FAERS Safety Report 9714058 (Version 1)
Quarter: 2013Q4

REPORT INFORMATION
  Report Type: Spontaneous
  Country: US (occurrence: US)
  Receive Date: 20131126
  Receipt Date: 20131126
  Transmission Date: 20140711
  Serious: No
  Sender: FDA-Public Use
  Company Number: US-GILEAD-2008-0018799

PATIENT
  Sex: Female
  Weight: 77.11 kg

DRUGS (7)
  1. LETAIRIS [Suspect]
     Indication: PULMONARY ARTERIAL HYPERTENSION
     Route: 048
     Dates: start: 20071102
  2. METOCLOPRAMIDE [Concomitant]
  3. EFFEXOR [Concomitant]
  4. COUMADIN [Concomitant]
  5. DIOVAN [Concomitant]
  6. ALLEGRA-D [Concomitant]
  7. CALCIUM [Concomitant]

REACTIONS (2)
  - Dizziness [None]
  - Hypotension [None]
